FAERS Safety Report 10242877 (Version 4)
Quarter: 2014Q3

REPORT INFORMATION
  Report Type: Spontaneous
  Country: IT (occurrence: IT)
  Receive Date: 20140618
  Receipt Date: 20140903
  Transmission Date: 20150326
  Serious: Yes (Life-Threatening)
  Sender: FDA-Public Use
  Company Number: IT-MERCK-1406ITA006745

PATIENT
  Age: 66 Year
  Sex: Female

DRUGS (9)
  1. SUPRANE [Suspect]
     Active Substance: DESFLURANE
     Dosage: UNK
  2. ROCURONIUM BROMIDE. [Suspect]
     Active Substance: ROCURONIUM BROMIDE
     Indication: GENERAL ANAESTHESIA
     Dosage: 30 MG, TOTAL DAILY DOSE
     Route: 042
     Dates: start: 20140530, end: 20140530
  3. PROPOFOL FRESENIUS KABI [Suspect]
     Active Substance: PROPOFOL
     Indication: GENERAL ANAESTHESIA
     Dosage: 200 MG, TOTAL DAILY DOSE
     Route: 042
     Dates: start: 20140530, end: 20140530
  4. DISUFEN [Suspect]
     Active Substance: SUFENTANIL CITRATE
     Indication: EPIDURAL ANALGESIA
     Dosage: UNK
     Dates: start: 20140530, end: 20140530
  5. ROPIVACAINE [Suspect]
     Active Substance: ROPIVACAINE
     Indication: EPIDURAL ANALGESIA
     Dosage: UNK
  6. FENTANEST [Suspect]
     Active Substance: FENTANYL CITRATE
     Indication: GENERAL ANAESTHESIA
     Dosage: 200 MCG, TOTAL DAILY DOSE
     Route: 042
     Dates: start: 20140530, end: 20140530
  7. UNASYN [Suspect]
     Active Substance: AMPICILLIN SODIUM\SULBACTAM SODIUM
     Dosage: 3G, TOTAL DAILY DOSE
     Route: 042
     Dates: start: 20140530, end: 20140530
  8. RANITIDINE [Suspect]
     Active Substance: RANITIDINE\RANITIDINE HYDROCHLORIDE
     Dosage: 50MG, TOTAL DAILY DOSE
     Route: 042
     Dates: start: 20140530, end: 20140530
  9. MIDAZOLAM [Suspect]
     Active Substance: MIDAZOLAM\MIDAZOLAM HYDROCHLORIDE
     Indication: GENERAL ANAESTHESIA
     Dosage: 2MG, TOTAL DAILY DOSE
     Route: 042
     Dates: start: 20140530, end: 20140530

REACTIONS (1)
  - Angioedema [Recovered/Resolved]

NARRATIVE: CASE EVENT DATE: 20140530
